FAERS Safety Report 5355234-9 (Version None)
Quarter: 2007Q2

REPORT INFORMATION
  Report Type: 
  Country: None (occurrence: None)
  Receive Date: 20070613
  Receipt Date: 20070605
  Transmission Date: 20071010
  Serious: Yes (Hospitalization)
  Sender: FDA-Public Use
  Company Number: US-JNJFOC-20070601306

PATIENT
  Sex: Female
  Weight: 58.06 kg

DRUGS (6)
  1. DOXIL [Suspect]
     Indication: PERITONEAL CARCINOMA
     Route: 042
  2. COUMADIN [Concomitant]
     Route: 065
  3. COUMADIN [Concomitant]
     Indication: CATHETER PLACEMENT
     Route: 065
  4. COZAAR [Concomitant]
     Indication: HYPERTENSION
     Route: 065
  5. NEXIUM [Concomitant]
     Route: 065
  6. DETROL [Concomitant]
     Route: 065

REACTIONS (4)
  - OFF LABEL USE [None]
  - RASH PRURITIC [None]
  - SKIN LESION [None]
  - SUBCLAVIAN VEIN THROMBOSIS [None]
